FAERS Safety Report 15023399 (Version 1)
Quarter: 2018Q2

REPORT INFORMATION
  Report Type: Spontaneous
  Country: DE (occurrence: DE)
  Receive Date: 20180618
  Receipt Date: 20180618
  Transmission Date: 20180711
  Serious: Yes (Hospitalization)
  Sender: FDA-Public Use
  Company Number: DE-TEVA-2018-DE-909559

PATIENT
  Age: 82 Year
  Sex: Female
  Weight: 82.5 kg

DRUGS (10)
  1. EFEROX 100 MIKROGRAMM [Concomitant]
     Dosage: 100 ?G, 1-0-0, TABLETTEN
     Route: 048
  2. ALENDRONIC ACID [Concomitant]
     Active Substance: ALENDRONIC ACID
     Dosage: 1 XW?CHENTLICH
     Route: 065
  3. FUROSEMID 40 MG [Concomitant]
     Active Substance: FUROSEMIDE
     Dosage: 40 MG, 1-1-0, TABLETTEN
     Route: 048
  4. ELIQUIS [Concomitant]
     Active Substance: APIXABAN
     Dosage: 2.5 MG, 1-0-0, TABLETTEN
     Route: 048
  5. CANDESARTAN COMP. 16MG/12,5MG [Concomitant]
     Dosage: 16|12.5 MG, 1-0-0, TABLETTEN
     Route: 048
  6. KALINOR [Concomitant]
     Dosage: 0-1-0, BRAUSETABLETTEN
     Route: 048
  7. PANTOZOL 40 MG [Concomitant]
     Dosage: 40 MG, 1-0-0, TABLETTEN
     Route: 048
  8. ALLOPURINOL. [Suspect]
     Active Substance: ALLOPURINOL
     Dosage: 300 MG, 0-0-1, TABLETTEN
     Route: 048
  9. CALCILAC [Concomitant]
     Active Substance: CALCIUM CARBONATE
     Dosage: 1-0-1, TABLETTEN
     Route: 048
  10. METOPROLOL. [Concomitant]
     Active Substance: METOPROLOL
     Dosage: 95 MG, 1-0-1, TABLETTEN
     Route: 048

REACTIONS (7)
  - Dyspnoea [Unknown]
  - Chest discomfort [Unknown]
  - General physical health deterioration [Unknown]
  - Cough [Unknown]
  - Fatigue [Unknown]
  - Influenza like illness [Unknown]
  - Pyrexia [Unknown]
